FAERS Safety Report 17731778 (Version 1)
Quarter: 2020Q2

REPORT INFORMATION
  Report Type: Spontaneous
  Country: CN (occurrence: CN)
  Receive Date: 20200501
  Receipt Date: 20200501
  Transmission Date: 20200714
  Serious: Yes (Other)
  Sender: FDA-Public Use
  Company Number: CN-ROCHE-2589407

PATIENT
  Age: 22 Year
  Sex: Male

DRUGS (15)
  1. CRIZOTINIB [Concomitant]
     Active Substance: CRIZOTINIB
     Indication: METASTASES TO BONE
  2. AVASTIN [Suspect]
     Active Substance: BEVACIZUMAB
     Indication: METASTASES TO BONE
  3. CRIZOTINIB [Concomitant]
     Active Substance: CRIZOTINIB
     Indication: ADENOCARCINOMA
     Route: 048
     Dates: start: 20170802
  4. CARBOPLATIN. [Concomitant]
     Active Substance: CARBOPLATIN
     Indication: ADENOCARCINOMA
     Route: 065
     Dates: start: 20191029, end: 20200113
  5. CARBOPLATIN. [Concomitant]
     Active Substance: CARBOPLATIN
     Indication: METASTASES TO BONE
  6. ALECENSA [Suspect]
     Active Substance: ALECTINIB HYDROCHLORIDE
     Indication: METASTASES TO LUNG
     Route: 048
     Dates: start: 2020
  7. AVASTIN [Suspect]
     Active Substance: BEVACIZUMAB
     Indication: METASTASES TO LUNG
  8. PEMETREXED. [Concomitant]
     Active Substance: PEMETREXED
     Indication: ADENOCARCINOMA
     Route: 065
     Dates: start: 20191029, end: 20200113
  9. CARBOPLATIN. [Concomitant]
     Active Substance: CARBOPLATIN
     Indication: METASTASES TO LUNG
  10. PEMETREXED. [Concomitant]
     Active Substance: PEMETREXED
     Indication: METASTASES TO LUNG
  11. AVASTIN [Suspect]
     Active Substance: BEVACIZUMAB
     Indication: ADENOCARCINOMA
     Route: 065
     Dates: start: 20191029, end: 20200113
  12. CRIZOTINIB [Concomitant]
     Active Substance: CRIZOTINIB
     Indication: METASTASES TO LUNG
  13. PEMETREXED. [Concomitant]
     Active Substance: PEMETREXED
     Indication: METASTASES TO BONE
  14. ALECENSA [Suspect]
     Active Substance: ALECTINIB HYDROCHLORIDE
     Indication: ADENOCARCINOMA
     Route: 048
     Dates: start: 201905
  15. ALECENSA [Suspect]
     Active Substance: ALECTINIB HYDROCHLORIDE
     Indication: METASTASES TO BONE
     Route: 048
     Dates: start: 20191029, end: 20200113

REACTIONS (2)
  - Bone marrow failure [Unknown]
  - Blood bilirubin increased [Unknown]
